FAERS Safety Report 7489236-3 (Version None)
Quarter: 2011Q2

REPORT INFORMATION
  Report Type: 
  Country: None (occurrence: None)
  Receive Date: 20110518
  Receipt Date: 20110504
  Transmission Date: 20111010
  Serious: Yes (Hospitalization)
  Sender: FDA-Public Use
  Company Number: FR-JNJFOC-20110502272

PATIENT
  Sex: Male
  Weight: 64 kg

DRUGS (23)
  1. REMICADE [Suspect]
     Route: 042
     Dates: start: 20100922
  2. REMICADE [Suspect]
     Route: 042
     Dates: start: 20100421
  3. REMICADE [Suspect]
     Route: 042
     Dates: start: 20100118
  4. REMICADE [Suspect]
     Route: 042
     Dates: start: 20091001
  5. REMICADE [Suspect]
     Route: 042
     Dates: start: 20091125
  6. REMICADE [Suspect]
     Route: 042
     Dates: start: 20100118
  7. ALENDRONATE SODIUM [Concomitant]
     Indication: OSTEOPOROSIS
     Route: 048
     Dates: start: 20090601
  8. REMICADE [Suspect]
     Route: 042
     Dates: start: 20100421
  9. REMICADE [Suspect]
     Route: 042
     Dates: start: 20100609
  10. REMICADE [Suspect]
     Indication: COLITIS ULCERATIVE
     Route: 042
     Dates: start: 20100303
  11. REMICADE [Suspect]
     Route: 042
     Dates: start: 20090708
  12. REMICADE [Suspect]
     Route: 042
     Dates: start: 20090622
  13. REMICADE [Suspect]
     Route: 042
     Dates: start: 20100922
  14. REMICADE [Suspect]
     Route: 042
     Dates: start: 20091125
  15. FOSAMAX [Concomitant]
     Indication: OSTEOPOROSIS
     Route: 048
  16. REMICADE [Suspect]
     Route: 042
     Dates: start: 20091001
  17. REMICADE [Suspect]
     Route: 042
     Dates: start: 20090708
  18. REMICADE [Suspect]
     Route: 042
     Dates: start: 20100609
  19. CACIT VITAMINE D3 [Concomitant]
     Route: 048
     Dates: start: 20100623
  20. REMICADE [Suspect]
     Indication: ENTEROCOLITIS HAEMORRHAGIC
     Route: 042
     Dates: start: 20090622
  21. REMICADE [Suspect]
     Route: 042
     Dates: start: 20100303
  22. REMICADE [Suspect]
     Route: 042
     Dates: start: 20090806
  23. REMICADE [Suspect]
     Route: 042
     Dates: start: 20090806

REACTIONS (4)
  - PNEUMONIA [None]
  - DISSEMINATED TUBERCULOSIS [None]
  - PERICARDITIS [None]
  - PULMONARY TUBERCULOSIS [None]
